FAERS Safety Report 5114919-X (Version None)
Quarter: 2006Q3

REPORT INFORMATION
  Report Type: 
  Country: None (occurrence: None)
  Receive Date: 20060926
  Receipt Date: 20060914
  Transmission Date: 20061208
  Serious: Yes (Other)
  Sender: FDA-Public Use
  Company Number: PHBS2006JP14355

PATIENT
  Age: 70 Year
  Sex: Male

DRUGS (2)
  1. GLEEVEC [Suspect]
     Indication: GASTROINTESTINAL STROMAL TUMOUR
     Dosage: 200 MG/D
     Route: 048
     Dates: start: 20050816, end: 20051101
  2. GLEEVEC [Suspect]
     Dosage: 200 MG/D
     Route: 048
     Dates: start: 20060628, end: 20060628

REACTIONS (3)
  - DYSHIDROSIS [None]
  - HYPERHIDROSIS [None]
  - RASH [None]
